FAERS Safety Report 7031248-8 (Version None)
Quarter: 2010Q4

REPORT INFORMATION
  Report Type: 
  Country: None (occurrence: None)
  Receive Date: 20101006
  Receipt Date: 20101004
  Transmission Date: 20110411
  Serious: Yes (Hospitalization)
  Sender: FDA-Public Use
  Company Number: A0880800A

PATIENT
  Age: 54 Year
  Sex: Female
  Weight: 109.1 kg

DRUGS (8)
  1. AVANDIA [Suspect]
     Dosage: 4MG TWICE PER DAY
     Route: 048
     Dates: start: 20010101, end: 20080603
  2. AVANDAMET [Suspect]
     Route: 048
     Dates: start: 20040216, end: 20040506
  3. KLONOPIN [Concomitant]
  4. METHOTREXATE [Concomitant]
  5. METFORMIN [Concomitant]
  6. MAXZIDE [Concomitant]
  7. PROZAC [Concomitant]
  8. TRAZODONE HCL [Concomitant]

REACTIONS (5)
  - CEREBRAL ISCHAEMIA [None]
  - CEREBROVASCULAR ACCIDENT [None]
  - GAIT DISTURBANCE [None]
  - MITRAL VALVE INCOMPETENCE [None]
  - TRANSIENT ISCHAEMIC ATTACK [None]
